FAERS Safety Report 20190118 (Version 1)
Quarter: 2021Q4

REPORT INFORMATION
  Report Type: Spontaneous
  Country: CN (occurrence: CN)
  Receive Date: 20211215
  Receipt Date: 20211215
  Transmission Date: 20220303
  Serious: Yes (Other)
  Sender: FDA-Public Use
  Company Number: CN-PFIZER INC-202101741287

PATIENT
  Age: 5 Year
  Sex: Female
  Weight: 17.5 kg

DRUGS (6)
  1. METHOTREXATE [Suspect]
     Active Substance: METHOTREXATE
     Indication: Chemotherapy
     Dosage: HIGH DOSE (HD)
     Route: 042
     Dates: start: 20211123, end: 20211123
  2. METHOTREXATE [Suspect]
     Active Substance: METHOTREXATE
     Dosage: 3.57 G, 1X/DAY (24-HOUR INFUSION)
     Route: 042
     Dates: start: 20211124, end: 20211124
  3. DEXAMETHASONE ACETATE [Suspect]
     Active Substance: DEXAMETHASONE ACETATE
     Indication: Chemotherapy
     Dosage: 4.278 MG, 3X/DAY
     Route: 048
     Dates: start: 20211123, end: 20211127
  4. VINDESINE SULFATE [Concomitant]
     Active Substance: VINDESINE SULFATE
     Indication: Chemotherapy
     Dosage: 2.14 MG, 1X/DAY
     Route: 042
     Dates: start: 20211123, end: 20211123
  5. VINDESINE SULFATE [Concomitant]
     Active Substance: VINDESINE SULFATE
     Dosage: 1.88 MG, 1X/DAY
     Route: 042
     Dates: start: 20211124, end: 20211124
  6. LEUCOVORIN CALCIUM [Concomitant]
     Active Substance: LEUCOVORIN CALCIUM
     Indication: Mucosal erosion
     Dosage: 11 MG, Q 6H, SIX TIMES
     Dates: start: 20211124, end: 20211124

REACTIONS (5)
  - Listless [Recovering/Resolving]
  - Slow response to stimuli [Recovering/Resolving]
  - Decreased appetite [Recovering/Resolving]
  - Electroencephalogram abnormal [Recovering/Resolving]
  - White matter lesion [Recovering/Resolving]

NARRATIVE: CASE EVENT DATE: 20211126
